FAERS Safety Report 6610884-4 (Version None)
Quarter: 2010Q1

REPORT INFORMATION
  Report Type: 
  Country: None (occurrence: None)
  Receive Date: 20100302
  Receipt Date: 20100128
  Transmission Date: 20100710
  Serious: No
  Sender: FDA-Public Use
  Company Number: US-ABBOTT-10P-163-0623549-00

PATIENT
  Age: 18 Year
  Sex: Male

DRUGS (1)
  1. DEPAKENE [Suspect]
     Indication: DRUG USE FOR UNKNOWN INDICATION

REACTIONS (2)
  - DIARRHOEA [None]
  - MUSCLE SPASMS [None]
